FAERS Safety Report 25166036 (Version 1)
Quarter: 2025Q2

REPORT INFORMATION
  Report Type: Report from Study
  Country: US (occurrence: US)
  Receive Date: 20250407
  Receipt Date: 20250407
  Transmission Date: 20250717
  Serious: Yes (Other)
  Sender: ACADIA PHARMACEUTICALS
  Company Number: US-ACADIA PHARMACEUTICALS INC.-ACA-2025-PIM-003744

PATIENT
  Sex: Male

DRUGS (9)
  1. NUPLAZID [Suspect]
     Active Substance: PIMAVANSERIN TARTRATE
     Indication: Parkinson^s disease
     Dosage: 34 MILLIGRAM, QD
     Route: 048
  2. NORTRIPTYLINE [Concomitant]
     Active Substance: NORTRIPTYLINE
  3. CARBIDOPA [Concomitant]
     Active Substance: CARBIDOPA
  4. ROSUVASTATIN [Concomitant]
     Active Substance: ROSUVASTATIN
  5. PRILOSEC [Concomitant]
     Active Substance: OMEPRAZOLE MAGNESIUM
  6. METOPROLOL [Concomitant]
     Active Substance: METOPROLOL
  7. MEMANTINE [Concomitant]
     Active Substance: MEMANTINE
  8. RIVASTIGMINE [Concomitant]
     Active Substance: RIVASTIGMINE
  9. LORATADINE [Concomitant]
     Active Substance: LORATADINE

REACTIONS (2)
  - Hallucination [Unknown]
  - Memory impairment [Unknown]
